FAERS Safety Report 8825671 (Version 1)
Quarter: 2012Q4

REPORT INFORMATION
  Report Type: 
  Country: BE (occurrence: BE)
  Receive Date: 20121004
  Receipt Date: 20121004
  Transmission Date: 20130627
  Serious: Yes (Other)
  Sender: FDA-Public Use
  Company Number: BE-BAXTER-2012BAX018442

PATIENT
  Sex: Male

DRUGS (2)
  1. ADVATE [Suspect]
     Indication: HEMOPHILIA A
     Route: 042
  2. ADVATE [Suspect]
     Route: 042

REACTIONS (2)
  - Anti factor VIII antibody positive [Recovered/Resolved]
  - Soft tissue haemorrhage [Recovered/Resolved]
